FAERS Safety Report 5527966-0 (Version None)
Quarter: 2007Q4

REPORT INFORMATION
  Report Type: 
  Country: None (occurrence: None)
  Receive Date: 20071109
  Receipt Date: 20070827
  Transmission Date: 20080405
  Serious: Yes (Other)
  Sender: FDA-Public Use
  Company Number: PHEH2007US11648

PATIENT
  Age: 55 Year
  Sex: Female

DRUGS (1)
  1. ESTRADERM [Suspect]
     Dosage: 0.1 MG

REACTIONS (3)
  - BREAST CANCER [None]
  - HEADACHE [None]
  - NERVOUSNESS [None]
